FAERS Safety Report 25241376 (Version 1)
Quarter: 2025Q2

REPORT INFORMATION
  Report Type: Spontaneous
  Country: HR (occurrence: HR)
  Receive Date: 20250425
  Receipt Date: 20250425
  Transmission Date: 20250717
  Serious: Yes (Other)
  Sender: TEVA
  Company Number: HR-TEVA-VS-3323272

PATIENT
  Sex: Female

DRUGS (1)
  1. RISPERIDONE [Suspect]
     Active Substance: RISPERIDONE
     Indication: Product used for unknown indication
     Route: 065

REACTIONS (17)
  - Depression [Unknown]
  - Micturition disorder [Unknown]
  - Self-injurious ideation [Unknown]
  - Anxiety [Unknown]
  - Psychotic disorder [Unknown]
  - Aggression [Unknown]
  - Hallucination, auditory [Unknown]
  - Hypoaesthesia [Unknown]
  - Salivary hypersecretion [Unknown]
  - Insomnia [Unknown]
  - Defaecation disorder [Unknown]
  - Dysgraphia [Unknown]
  - Speech disorder [Unknown]
  - Eating disorder [Unknown]
  - Dysphagia [Unknown]
  - Mastication disorder [Unknown]
  - Reading disorder [Unknown]
